FAERS Safety Report 7778509-2 (Version None)
Quarter: 2011Q3

REPORT INFORMATION
  Report Type: 
  Country: None (occurrence: None)
  Receive Date: 20110926
  Receipt Date: 20110916
  Transmission Date: 20111222
  Serious: Yes (Other)
  Sender: FDA-Public Use
  Company Number: US-BAYER-2011-087631

PATIENT
  Age: 59 Year
  Sex: Female

DRUGS (1)
  1. AVELOX [Suspect]
     Indication: PNEUMONIA
     Dosage: 400 MG, UNK
     Route: 048
     Dates: start: 20110701

REACTIONS (4)
  - ABDOMINAL PAIN UPPER [None]
  - DYSPNOEA [None]
  - CHEST DISCOMFORT [None]
  - GASTRIC DISORDER [None]
